FAERS Safety Report 24008836 (Version 1)
Quarter: 2024Q2

REPORT INFORMATION
  Report Type: Spontaneous
  Country: US (occurrence: US)
  Receive Date: 20240625
  Receipt Date: 20240625
  Transmission Date: 20240716
  Serious: Yes (Other)
  Sender: FDA-Public Use
  Company Number: US-E2BLSMVVAL-SPO/USA/24/0008464

PATIENT
  Sex: Female

DRUGS (1)
  1. DIETARY SUPPLEMENT [Suspect]
     Active Substance: DIETARY SUPPLEMENT
     Indication: Product used for unknown indication
     Dosage: FOR SEVERAL MONTHS
     Route: 065

REACTIONS (4)
  - Suicidal ideation [Recovering/Resolving]
  - Mental disorder [Recovering/Resolving]
  - Depression [Recovering/Resolving]
  - Emotional disorder [Recovering/Resolving]
